FAERS Safety Report 8472480-6 (Version None)
Quarter: 2012Q2

REPORT INFORMATION
  Report Type: 
  Country: None (occurrence: None)
  Receive Date: 20120627
  Receipt Date: 20120124
  Transmission Date: 20120825
  Serious: No
  Sender: FDA-Public Use
  Company Number: US-AMGEN-USASP2012004856

PATIENT
  Age: 54 Year
  Sex: Male

DRUGS (3)
  1. EPOGEN [Suspect]
     Indication: ANAEMIA
     Dosage: 5000 IU, 3 TIMES/WK
     Dates: start: 20100201
  2. HYDRALAZINE HYDROCHLORIDE [Concomitant]
     Dosage: 3 MG, QD
  3. AMLODIPINE [Concomitant]
     Dosage: 3 MG, QD

REACTIONS (4)
  - HAIR GROWTH ABNORMAL [None]
  - ALOPECIA [None]
  - HAIR TEXTURE ABNORMAL [None]
  - THERAPEUTIC RESPONSE UNEXPECTED [None]
